FAERS Safety Report 5659445-4 (Version None)
Quarter: 2008Q1

REPORT INFORMATION
  Report Type: 
  Country: None (occurrence: None)
  Receive Date: 20080307
  Receipt Date: 20080307
  Transmission Date: 20080703
  Serious: Yes (Other)
  Sender: FDA-Public Use
  Company Number: None

PATIENT
  Sex: Female

DRUGS (7)
  1. CARVEDILOL [Suspect]
     Indication: CARDIAC VALVE DISEASE
     Dosage: 6.25MG TWICE DAILY PO
     Route: 048
     Dates: start: 20070908
  2. CARVEDILOL [Suspect]
     Indication: CONGESTIVE CARDIOMYOPATHY
     Dosage: 6.25MG TWICE DAILY PO
     Route: 048
     Dates: start: 20070908
  3. LASIX [Concomitant]
  4. POTASSIUM CHLORIDE [Concomitant]
  5. METFORMIN HCL [Concomitant]
  6. AVAPRO [Concomitant]
  7. MULTIVIT [Concomitant]

REACTIONS (2)
  - DIARRHOEA [None]
  - PHARMACEUTICAL PRODUCT COMPLAINT [None]
